FAERS Safety Report 10856219 (Version 1)
Quarter: 2015Q1

REPORT INFORMATION
  Report Type: Report from Study
  Country: US (occurrence: US)
  Receive Date: 20150223
  Receipt Date: 20150223
  Transmission Date: 20150721
  Serious: Yes (Hospitalization, Other)
  Sender: FDA-Public Use
  Company Number: US-GILEAD-2015-0137569

PATIENT
  Age: 47 Year

DRUGS (1)
  1. LEDIPASVIR/SOFOSBUVIR [Suspect]
     Active Substance: LEDIPASVIR\SOFOSBUVIR
     Indication: HEPATITIS C
     Dosage: 1 DF, UNK
     Route: 048

REACTIONS (6)
  - White blood cell count increased [Unknown]
  - Bone marrow failure [Unknown]
  - Plasma cells increased [Unknown]
  - Bone marrow disorder [Unknown]
  - Anaemia [Unknown]
  - Lymphocyte count decreased [Unknown]
